FAERS Safety Report 13835403 (Version 2)
Quarter: 2017Q3

REPORT INFORMATION
  Report Type: Report from Study
  Country: US (occurrence: BR)
  Receive Date: 20170804
  Receipt Date: 20170915
  Transmission Date: 20171127
  Serious: Yes (Other)
  Sender: FDA-Public Use
  Company Number: US-SUNOVION-2017SUN003349

PATIENT
  Sex: Female
  Weight: 82 kg

DRUGS (6)
  1. TAMIRAM [Concomitant]
     Active Substance: LEVOFLOXACIN
  2. INDACATEROL AND GLYCOPYRROLATE [Suspect]
     Active Substance: GLYCOPYRROLATE\INDACATEROL MALEATE
     Indication: CHRONIC OBSTRUCTIVE PULMONARY DISEASE
     Dosage: UNK
     Route: 065
  3. CORTISONE [Concomitant]
     Active Substance: CORTISONE\HYDROCORTISONE
  4. INDACATEROL AND GLYCOPYRROLATE [Suspect]
     Active Substance: GLYCOPYRROLATE\INDACATEROL MALEATE
     Indication: EMPHYSEMA
  5. RELVAR [Suspect]
     Active Substance: FLUTICASONE FUROATE\VILANTEROL TRIFENATATE
     Indication: PRODUCT USED FOR UNKNOWN INDICATION
  6. METICORTEN [Concomitant]
     Active Substance: PREDNISONE

REACTIONS (8)
  - Tendonitis [Unknown]
  - Chronic obstructive pulmonary disease [Unknown]
  - Lung infection [Unknown]
  - Bronchitis [Unknown]
  - Fatigue [Unknown]
  - Drug ineffective [Unknown]
  - Asthma [Unknown]
  - Malaise [Unknown]
